FAERS Safety Report 25023588 (Version 1)
Quarter: 2025Q1

REPORT INFORMATION
  Report Type: Spontaneous
  Country: GB (occurrence: GB)
  Receive Date: 20250228
  Receipt Date: 20250228
  Transmission Date: 20250409
  Serious: Yes (Other)
  Sender: B BRAUN
  Company Number: GB-B.Braun Medical Inc.-2171948

PATIENT
  Age: 19 Year
  Sex: Male
  Weight: 61 kg

DRUGS (5)
  1. ACETAMINOPHEN [Suspect]
     Active Substance: ACETAMINOPHEN
     Indication: Pain
     Dates: start: 20250120, end: 20250203
  2. CABOZANTINIB [Suspect]
     Active Substance: CABOZANTINIB
  3. IBUPROFEN [Concomitant]
     Active Substance: IBUPROFEN
  4. DOCUSATE [Concomitant]
     Active Substance: DOCUSATE
  5. PREGABALIN [Concomitant]
     Active Substance: PREGABALIN

REACTIONS (5)
  - Pancreatitis acute [Not Recovered/Not Resolved]
  - Off label use [Unknown]
  - Intentional product misuse [Unknown]
  - Jaundice cholestatic [Unknown]
  - Disease progression [Unknown]
